FAERS Safety Report 7014795-4 (Version None)
Quarter: 2010Q3

REPORT INFORMATION
  Report Type: 
  Country: None (occurrence: None)
  Receive Date: 20100927
  Receipt Date: 20100915
  Transmission Date: 20110219
  Serious: Yes (Death, Life-Threatening, Hospitalization)
  Sender: FDA-Public Use
  Company Number: JP-BRISTOL-MYERS SQUIBB COMPANY-14456321

PATIENT
  Age: 64 Year
  Sex: Male

DRUGS (8)
  1. PARAPLATIN [Suspect]
     Indication: LUNG NEOPLASM MALIGNANT
     Dosage: THERAPY STARTED FROM 16MAY06
     Route: 041
     Dates: start: 20060718, end: 20060718
  2. TAXOTERE [Suspect]
     Indication: LUNG NEOPLASM MALIGNANT
     Dosage: THERAPY STARTED FROM 16MAY06
     Route: 041
     Dates: start: 20060718, end: 20060718
  3. PICIBANIL [Suspect]
     Indication: PNEUMOTHORAX
     Dosage: GIVEN ON 28AUG06(5KE,1DAY);ALSO ON 30AUG06,5SEP06,11SEP06 AND 21SEP06(10KE,4DAYS)
     Route: 034
     Dates: start: 20060828, end: 20060921
  4. GASTER D [Concomitant]
     Route: 048
     Dates: start: 20060512, end: 20060925
  5. EURODIN [Concomitant]
     Route: 048
     Dates: start: 20060608, end: 20060925
  6. MAGLAX [Concomitant]
     Route: 048
     Dates: start: 20060319, end: 20060925
  7. PREDONINE [Concomitant]
     Route: 048
     Dates: start: 20060601, end: 20060925
  8. PURSENNID [Concomitant]
     Route: 048
     Dates: start: 20060609, end: 20060925

REACTIONS (3)
  - INTERSTITIAL LUNG DISEASE [None]
  - PNEUMOTHORAX [None]
  - RESPIRATORY FAILURE [None]
